FAERS Safety Report 4926259-X (Version None)
Quarter: 2006Q1

REPORT INFORMATION
  Report Type: 
  Country: None (occurrence: None)
  Receive Date: 20060228
  Receipt Date: 20051221
  Transmission Date: 20060701
  Serious: No
  Sender: FDA-Public Use
  Company Number: US-GLAXOSMITHKLINE-A0586633A

PATIENT
  Age: 36 Year
  Sex: Female
  Weight: 79.5 kg

DRUGS (6)
  1. LAMICTAL [Suspect]
     Route: 048
  2. ZOLOFT [Concomitant]
     Indication: DRUG USE FOR UNKNOWN INDICATION
     Dosage: 150MG PER DAY
     Route: 048
     Dates: start: 20030401
  3. TOPAMAX [Concomitant]
     Dosage: 100MG UNKNOWN
     Route: 048
     Dates: start: 20021001
  4. AMBIEN [Concomitant]
     Indication: INSOMNIA
     Dosage: 10MG UNKNOWN
     Route: 048
     Dates: start: 20030301
  5. HYDROXYZINE [Concomitant]
     Dosage: 25MG AS REQUIRED
     Route: 048
     Dates: start: 20021001
  6. WELLBUTRIN XL [Concomitant]
     Dosage: 300MG PER DAY
     Route: 048
     Dates: start: 20050901, end: 20051001

REACTIONS (1)
  - LYMPHADENOPATHY [None]
